FAERS Safety Report 6345542-7 (Version None)
Quarter: 2009Q3

REPORT INFORMATION
  Report Type: 
  Country: None (occurrence: None)
  Receive Date: 20090909
  Receipt Date: 20090827
  Transmission Date: 20100115
  Serious: Yes (Other)
  Sender: FDA-Public Use
  Company Number: DE-PFIZER INC-2009260925

PATIENT

DRUGS (2)
  1. ZELDOX [Suspect]
     Route: 048
  2. SEROQUEL [Interacting]

REACTIONS (2)
  - DRUG INTERACTION [None]
  - HEARING IMPAIRED [None]
